FAERS Safety Report 15839939 (Version 6)
Quarter: 2019Q2

REPORT INFORMATION
  Report Type: Report from Study
  Country: US (occurrence: US)
  Receive Date: 20190117
  Receipt Date: 20190405
  Transmission Date: 20190711
  Serious: Yes (Hospitalization)
  Sender: FDA-Public Use
  Company Number: US-ACTELION-A-NJ2019-185093

PATIENT
  Sex: Female
  Weight: 58.96 kg

DRUGS (3)
  1. ADEMPAS [Concomitant]
     Active Substance: RIOCIGUAT
     Dosage: UNK
     Dates: start: 20190225
  2. VELETRI [Suspect]
     Active Substance: EPOPROSTENOL
     Indication: PULMONARY HYPERTENSION
     Dosage: 8 NG/KG, PER MIN
     Route: 042
     Dates: start: 2018
  3. WARFARIN [Concomitant]
     Active Substance: WARFARIN

REACTIONS (11)
  - Dyspnoea [Unknown]
  - Cardiac operation [Unknown]
  - Diarrhoea [Unknown]
  - Fatigue [Unknown]
  - Hypotension [Unknown]
  - Nervousness [Unknown]
  - Catheter site pain [Unknown]
  - Oedema peripheral [Unknown]
  - Lung operation [Unknown]
  - Cough [Unknown]
  - Therapy change [Unknown]
